FAERS Safety Report 23225576 (Version 1)
Quarter: 2023Q4

REPORT INFORMATION
  Report Type: Report from Study
  Country: US (occurrence: None)
  Receive Date: 20231124
  Receipt Date: 20231124
  Transmission Date: 20240110
  Serious: Yes (Hospitalization)
  Sender: FDA-Public Use
  Company Number: US-ROCHE-3458476

PATIENT
  Age: 72 Year
  Sex: Male
  Weight: 82 kg

DRUGS (7)
  1. ADO-TRASTUZUMAB EMTANSINE [Suspect]
     Active Substance: ADO-TRASTUZUMAB EMTANSINE
     Indication: Salivary gland cancer
     Route: 041
     Dates: start: 20230803, end: 20231011
  2. TUCATINIB [Suspect]
     Active Substance: TUCATINIB
     Indication: Salivary gland cancer
     Route: 048
     Dates: start: 20230803, end: 20231028
  3. AMLODIPINE [Concomitant]
     Active Substance: AMLODIPINE BESYLATE
  4. ROSUVASTATIN [Concomitant]
     Active Substance: ROSUVASTATIN
  5. ASPIRIN [Concomitant]
     Active Substance: ASPIRIN
  6. GABAPENTIN [Concomitant]
     Active Substance: GABAPENTIN
  7. ONDANSETRON [Concomitant]
     Active Substance: ONDANSETRON

REACTIONS (1)
  - Disease progression [Unknown]

NARRATIVE: CASE EVENT DATE: 20231101
